FAERS Safety Report 7623289-4 (Version None)
Quarter: 2011Q3

REPORT INFORMATION
  Report Type: 
  Country: None (occurrence: None)
  Receive Date: 20110720
  Receipt Date: 20110715
  Transmission Date: 20111222
  Serious: Yes (Other)
  Sender: FDA-Public Use
  Company Number: BR-PFIZER INC-2011158184

PATIENT
  Age: 38 Year
  Sex: Female
  Weight: 65 kg

DRUGS (2)
  1. LYRICA [Suspect]
     Indication: ARTHRALGIA
     Dosage: 75 MG, 1X/DAY
     Route: 048
     Dates: start: 20110501, end: 20110501
  2. LYRICA [Suspect]
     Indication: TENDONITIS
     Dosage: 75 MG, 2X/DAY
     Route: 048
     Dates: start: 20110501, end: 20110601

REACTIONS (8)
  - DRUG INEFFECTIVE [None]
  - PRURITUS [None]
  - DIZZINESS [None]
  - INAPPROPRIATE SCHEDULE OF DRUG ADMINISTRATION [None]
  - RENAL PAIN [None]
  - BACK PAIN [None]
  - HEPATIC PAIN [None]
  - URTICARIA [None]
